FAERS Safety Report 9341417 (Version 2)
Quarter: 2013Q3

REPORT INFORMATION
  Report Type: Spontaneous
  Country: JP (occurrence: JP)
  Receive Date: 20130611
  Receipt Date: 20130808
  Transmission Date: 20140515
  Serious: Yes (Other)
  Sender: FDA-Public Use
  Company Number: JP-ROCHE-1232909

PATIENT
  Age: 48 Year
  Sex: Male

DRUGS (18)
  1. RITUXIMAB [Suspect]
     Indication: B-CELL LYMPHOMA
     Route: 042
     Dates: start: 20090805
  2. RITUXIMAB [Suspect]
     Route: 042
     Dates: start: 20090812
  3. ZEVALIN YTTRIUM [Suspect]
     Indication: B-CELL LYMPHOMA
     Route: 042
     Dates: start: 20090805, end: 20090805
  4. ZEVALIN INDIUM [Suspect]
     Indication: B-CELL LYMPHOMA
     Dosage: 11.1 MBQ/KG
     Route: 042
     Dates: start: 20090812, end: 20090812
  5. CYCLOPHOSPHAMIDE [Suspect]
     Indication: B-CELL LYMPHOMA
     Route: 065
  6. VINCRISTINE SULFATE [Suspect]
     Indication: B-CELL LYMPHOMA
     Route: 065
  7. DOXORUBICIN HYDROCHLORIDE [Suspect]
     Indication: B-CELL LYMPHOMA
     Route: 065
  8. PREDNISOLONE [Suspect]
     Indication: B-CELL LYMPHOMA
     Route: 065
  9. CLADRIBINE [Suspect]
     Indication: B-CELL LYMPHOMA
     Route: 065
  10. MITOXANTRONE HYDROCHLORIDE [Suspect]
     Indication: B-CELL LYMPHOMA
     Route: 065
  11. ALLEGRA [Concomitant]
     Route: 048
     Dates: start: 20090805, end: 20090812
  12. CALONAL [Concomitant]
     Dosage: DAILY
     Route: 048
     Dates: start: 20090805, end: 20090812
  13. BAKTAR [Concomitant]
     Indication: INFECTION PROPHYLAXIS
     Dosage: DAILY
     Route: 048
     Dates: end: 20090325
  14. ITRIZOLE [Concomitant]
     Indication: INFECTION PROPHYLAXIS
     Dosage: DAILY
     Route: 048
     Dates: start: 20090325
  15. ZANTAC [Concomitant]
     Dosage: DAILY
     Route: 065
     Dates: start: 20090325
  16. NEUTROGIN [Concomitant]
     Indication: NEUTROPHIL COUNT DECREASED
     Dosage: DAILY
     Route: 058
     Dates: start: 20090911
  17. SOLU-CORTEF [Concomitant]
     Dosage: DAILY
     Route: 042
     Dates: start: 20090911, end: 20091022
  18. NEO-MINOPHAGEN C [Concomitant]
     Dosage: DAILY
     Route: 042
     Dates: start: 20090911, end: 20090911

REACTIONS (1)
  - Myelodysplastic syndrome [Not Recovered/Not Resolved]
